FAERS Safety Report 22144802 (Version 3)
Quarter: 2024Q4

REPORT INFORMATION
  Report Type: Report from Study
  Country: US (occurrence: US)
  Receive Date: 20230328
  Receipt Date: 20241016
  Transmission Date: 20250114
  Serious: Yes (Other)
  Sender: UCB
  Company Number: US-UCBSA-2023014908

PATIENT
  Age: 25 Year
  Sex: Male
  Weight: 45.8 kg

DRUGS (2)
  1. FINTEPLA [Suspect]
     Active Substance: FENFLURAMINE
     Indication: Product used for unknown indication
     Dosage: 6 MILLILITER, 2X/DAY (BID)
     Dates: start: 202211
  2. FINTEPLA [Suspect]
     Active Substance: FENFLURAMINE
     Dosage: 26.4 MILLIGRAM/DAILY

REACTIONS (4)
  - Seizure [Not Recovered/Not Resolved]
  - Aortic valve incompetence [Unknown]
  - Mitral valve incompetence [Unknown]
  - Therapeutic product ineffective [Unknown]

NARRATIVE: CASE EVENT DATE: 20230215
